FAERS Safety Report 8350294-5 (Version None)
Quarter: 2012Q2

REPORT INFORMATION
  Report Type: 
  Country: None (occurrence: None)
  Receive Date: 20120510
  Receipt Date: 20120507
  Transmission Date: 20120825
  Serious: Yes (Other)
  Sender: FDA-Public Use
  Company Number: GR-PFIZER INC-2012110610

PATIENT
  Sex: Male

DRUGS (1)
  1. ZYVOX [Suspect]
     Indication: EMPYEMA
     Dosage: 600 MG, 2X/DAY
     Route: 042
     Dates: start: 20120101, end: 20120401

REACTIONS (3)
  - HYPOALDOSTERONISM [None]
  - LACTIC ACIDOSIS [None]
  - HYPERKALAEMIA [None]
